FAERS Safety Report 4452300-7 (Version None)
Quarter: 2004Q3

REPORT INFORMATION
  Report Type: 
  Country: None (occurrence: None)
  Receive Date: 20040917
  Receipt Date: 20040707
  Transmission Date: 20050211
  Serious: Yes (Other)
  Sender: FDA-Public Use
  Company Number: GB-ROCHE-374294

PATIENT
  Age: 20 Year
  Sex: Female

DRUGS (1)
  1. ROACCUTANE [Suspect]
     Indication: DRUG USE FOR UNKNOWN INDICATION
     Route: 048
     Dates: start: 20040415, end: 20040615

REACTIONS (5)
  - FOOT FRACTURE [None]
  - MULTIPLE FRACTURES [None]
  - SCAPULA FRACTURE [None]
  - SUICIDE ATTEMPT [None]
  - ULNA FRACTURE [None]
